FAERS Safety Report 13094468 (Version 1)
Quarter: 2017Q1

REPORT INFORMATION
  Report Type: Spontaneous
  Country: JP (occurrence: JP)
  Receive Date: 20170106
  Receipt Date: 20170106
  Transmission Date: 20170428
  Serious: Yes (Other)
  Sender: FDA-Public Use
  Company Number: JP-PFIZER INC-2016601340

PATIENT
  Age: 70 Year
  Sex: Male

DRUGS (2)
  1. CELECOX [Suspect]
     Active Substance: CELECOXIB
     Indication: PROCEDURAL PAIN
     Dosage: 200 MG, UNKNOWN FREQ., ONE TIME
     Route: 048
     Dates: start: 2016, end: 2016
  2. CELECOX [Suspect]
     Active Substance: CELECOXIB
     Dosage: 100 MG, 1X/DAY
     Route: 048
     Dates: start: 2016

REACTIONS (2)
  - Muscle rupture [Unknown]
  - Intentional underdose [Unknown]

NARRATIVE: CASE EVENT DATE: 2016
